FAERS Safety Report 5197565-1 (Version None)
Quarter: 2007Q1

REPORT INFORMATION
  Report Type: 
  Country: None (occurrence: None)
  Receive Date: 20070103
  Receipt Date: 20061222
  Transmission Date: 20070707
  Serious: Yes (Other)
  Sender: FDA-Public Use
  Company Number: FR-PFIZER INC-2006155948

PATIENT
  Age: 40 Year
  Sex: Female

DRUGS (7)
  1. LYRICA [Suspect]
     Indication: NEURALGIA
  2. EFFEXOR [Concomitant]
  3. TRAMADOL HCL [Concomitant]
  4. ADVIL [Concomitant]
  5. MINIDRIL [Concomitant]
  6. XANAX [Concomitant]
  7. MORPHINE [Concomitant]
     Dates: end: 20060901

REACTIONS (2)
  - HAEMATOMA [None]
  - SPONTANEOUS HAEMATOMA [None]
